FAERS Safety Report 7284984-2 (Version None)
Quarter: 2011Q1

REPORT INFORMATION
  Report Type: 
  Country: None (occurrence: None)
  Receive Date: 20110210
  Receipt Date: 20101221
  Transmission Date: 20110831
  Serious: Yes (Hospitalization)
  Sender: FDA-Public Use
  Company Number: US-BAYER-201026321NA

PATIENT
  Sex: Female
  Weight: 58.182 kg

DRUGS (10)
  1. YASMIN [Suspect]
     Indication: PRODUCT USED FOR UNKNOWN INDICATION
     Route: 048
     Dates: start: 20071009, end: 20080604
  2. TOPAMAX [Concomitant]
     Indication: CONVULSION
     Dates: start: 20020101
  3. ADVAIR [Concomitant]
  4. ADVAIR DISKUS 100/50 [Concomitant]
     Indication: ASTHMA
     Dosage: DAILY
     Dates: start: 20080101
  5. ANTIBIOTICS [Concomitant]
     Dosage: AS NEEDED
  6. YAZ [Suspect]
     Indication: PRODUCT USED FOR UNKNOWN INDICATION
     Route: 048
     Dates: start: 20040101, end: 20071009
  7. UNCODEABLE ^UNCLASSIFIABLE^ [Concomitant]
  8. ALBUTEROL [Concomitant]
  9. UNCODEABLE ^UNCLASSIFIABLE^ [Concomitant]
  10. NSAID'S [Concomitant]
     Dosage: AS NEEDED

REACTIONS (5)
  - PULMONARY EMBOLISM [None]
  - CHEST PAIN [None]
  - OEDEMA PERIPHERAL [None]
  - DEEP VEIN THROMBOSIS [None]
  - DYSPNOEA [None]
